FAERS Safety Report 10327528 (Version 5)
Quarter: 2014Q3

REPORT INFORMATION
  Report Type: Spontaneous
  Country: US (occurrence: US)
  Receive Date: 20140721
  Receipt Date: 20140912
  Transmission Date: 20150326
  Serious: Yes (Hospitalization, Other)
  Sender: FDA-Public Use
  Company Number: US-ACTELION-A-NJ2014-102028

PATIENT
  Age: 66 Year
  Sex: Female

DRUGS (37)
  1. OPANA [Concomitant]
     Active Substance: OXYMORPHONE HYDROCHLORIDE
     Dosage: 10 MG, BID
     Route: 048
     Dates: start: 2013
  2. LIDODERM [Concomitant]
     Active Substance: LIDOCAINE
     Dosage: UNK, QD
  3. AMRIX [Concomitant]
     Active Substance: CYCLOBENZAPRINE HYDROCHLORIDE
     Dosage: 30 MG, QPM
  4. VIACTIV [Concomitant]
     Active Substance: CALCIUM\VITAMIN D\VITAMIN K5
     Dosage: 1000 MG, QD
     Dates: start: 2009
  5. CEVIMELINE [Concomitant]
     Active Substance: CEVIMELINE
     Dosage: 30 MG, TID
     Route: 048
  6. ADDERALL [Concomitant]
     Active Substance: AMPHETAMINE ASPARTATE\AMPHETAMINE SULFATE\DEXTROAMPHETAMINE SACCHARATE\DEXTROAMPHETAMINE SULFATE
     Dosage: 30 MG, QD
     Dates: start: 2009
  7. DEXTROAMPHETAMINE [Concomitant]
     Active Substance: DEXTROAMPHETAMINE
     Dosage: 30 MG, QAM
     Route: 048
  8. BIMATOPROST [Concomitant]
     Active Substance: BIMATOPROST
     Dosage: QOD
  9. CYMBALTA [Concomitant]
     Active Substance: DULOXETINE HYDROCHLORIDE
     Dosage: 120 MG, QAM
     Route: 048
     Dates: start: 2007
  10. ZOCOR [Concomitant]
     Active Substance: SIMVASTATIN
     Dosage: 20 MG, QPM
     Route: 048
  11. OXYGEN. [Concomitant]
     Active Substance: OXYGEN
     Dosage: 2 L, AT NIGHT
  12. SIMVASTATIN. [Concomitant]
     Active Substance: SIMVASTATIN
     Dosage: 20 MG, AT BEDTIME
     Dates: start: 2007
  13. EVOXAC [Concomitant]
     Active Substance: CEVIMELINE HYDROCHLORIDE
     Dosage: 30 MG, TID
     Dates: start: 2009
  14. XYREM [Concomitant]
     Active Substance: SODIUM OXYBATE
     Dosage: 3000 MG, QPM
     Dates: start: 2009
  15. CELEBREX [Concomitant]
     Active Substance: CELECOXIB
     Dosage: 200 MG, BID
     Route: 048
     Dates: start: 2009
  16. VOLTAREN [Concomitant]
     Active Substance: DICLOFENAC SODIUM
     Dosage: 2 G, QID
  17. HYDROCHLOROTHIAZIDE. [Concomitant]
     Active Substance: HYDROCHLOROTHIAZIDE
     Dosage: 25 MG, QAM
     Route: 048
  18. OPSUMIT [Suspect]
     Active Substance: MACITENTAN
     Indication: PULMONARY ARTERIAL HYPERTENSION
     Dosage: 10 MG, QD
     Route: 048
     Dates: start: 201404
  19. HYDROXYZINE [Concomitant]
     Active Substance: HYDROXYZINE\HYDROXYZINE HYDROCHLORIDE
     Dosage: 50 MG, BID
     Route: 048
  20. FOLIC ACID. [Concomitant]
     Active Substance: FOLIC ACID
     Dosage: 1 MG, BID
     Route: 048
     Dates: start: 2007
  21. MULTIVITAMIN AND MINERAL [Concomitant]
     Dosage: 1 TBS, QD
     Dates: start: 2004
  22. TOVIAZ [Concomitant]
     Active Substance: FESOTERODINE FUMARATE
     Dosage: 8 MG, QD
     Dates: start: 201403
  23. ZOFRAN [Concomitant]
     Active Substance: ONDANSETRON HYDROCHLORIDE
     Dosage: 8 MG, UNK
     Dates: start: 2006
  24. LATISSE [Concomitant]
     Active Substance: BIMATOPROST
     Dosage: UNK
     Dates: start: 2009
  25. CLOTRIMAZOLE. [Concomitant]
     Active Substance: CLOTRIMAZOLE
     Dosage: UNK, BID
  26. LYRICA [Concomitant]
     Active Substance: PREGABALIN
     Dosage: 50 MG, IN AM
     Dates: start: 2009
  27. PRAMIPEXOLE [Concomitant]
     Active Substance: PRAMIPEXOLE
     Dosage: 0.5 MG, BID
     Route: 048
  28. PERCOCET [Concomitant]
     Active Substance: ACETAMINOPHEN\OXYCODONE HYDROCHLORIDE
     Dosage: 10/325 MG, 2 TABLETS, PRN
     Route: 048
     Dates: start: 2004
  29. DOCUSATE [Concomitant]
     Active Substance: DOCUSATE
     Dosage: UNK, QPM
     Route: 048
  30. SPIRONOLACTONE. [Concomitant]
     Active Substance: SPIRONOLACTONE
     Dosage: 50 MG, BID
     Dates: start: 2009
  31. LYRICA [Concomitant]
     Active Substance: PREGABALIN
     Dosage: 100 MG, IN PM
     Route: 048
     Dates: start: 2009
  32. VITAMIN D [Concomitant]
     Active Substance: CHOLECALCIFEROL
     Dosage: 50000 IU, ONCE A WEEK
  33. FLUOROMETHOLONE. [Concomitant]
     Active Substance: FLUOROMETHOLONE
     Dosage: 1 DROP, BID EACH EYE
     Dates: start: 2009
  34. TOPAMAX [Concomitant]
     Active Substance: TOPIRAMATE
     Dosage: 100 MG, BID
     Route: 048
     Dates: start: 2004
  35. HEMATINIC WITH FOLIC ACID [Concomitant]
     Dosage: 1 TBS, QPM
     Route: 048
  36. ASPIRIN. [Concomitant]
     Active Substance: ASPIRIN
     Dosage: 325 MG, QD
     Route: 048
  37. NEXIUM [Concomitant]
     Active Substance: ESOMEPRAZOLE MAGNESIUM
     Dosage: 40 MG, BID
     Dates: start: 2004

REACTIONS (4)
  - Transient ischaemic attack [Recovered/Resolved]
  - Carotid endarterectomy [Unknown]
  - Speech disorder [Recovered/Resolved]
  - Carotid artery occlusion [Recovered/Resolved]

NARRATIVE: CASE EVENT DATE: 20140704
